FAERS Safety Report 16325273 (Version 3)
Quarter: 2021Q1

REPORT INFORMATION
  Report Type: Spontaneous
  Country: US (occurrence: US)
  Receive Date: 20190517
  Receipt Date: 20210224
  Transmission Date: 20210419
  Serious: Yes (Other)
  Sender: FDA-Public Use
  Company Number: US-GILEAD-2019-0407765

PATIENT
  Age: 62 Year
  Sex: Male
  Weight: 83.45 kg

DRUGS (24)
  1. QUETIAPINE FUMARATE. [Concomitant]
     Active Substance: QUETIAPINE FUMARATE
  2. NITROGLYCERIN. [Concomitant]
     Active Substance: NITROGLYCERIN
  3. TRUVADA [Suspect]
     Active Substance: EMTRICITABINE\TENOFOVIR DISOPROXIL FUMARATE
     Indication: HIV INFECTION
     Dosage: UNK
     Route: 048
     Dates: start: 2004, end: 202004
  4. DOCUSATE [Concomitant]
     Active Substance: DOCUSATE
  5. MOMETASONE [Concomitant]
     Active Substance: MOMETASONE
  6. RALTEGRAVIR. [Concomitant]
     Active Substance: RALTEGRAVIR
  7. FINASTERIDE. [Concomitant]
     Active Substance: FINASTERIDE
  8. TAMULOSIN [Concomitant]
     Active Substance: TAMSULOSIN
  9. ASPIRIN [ACETYLSALICYLIC ACID] [Concomitant]
     Active Substance: ASPIRIN
  10. GABAPENTIN. [Concomitant]
     Active Substance: GABAPENTIN
  11. METHYLPREDNISOLONE. [Concomitant]
     Active Substance: METHYLPREDNISOLONE
  12. PRAVASTATIN. [Concomitant]
     Active Substance: PRAVASTATIN
  13. KALETRA [Concomitant]
     Active Substance: LOPINAVIR\RITONAVIR
  14. POLYETHYLENE GLYCOL 3350. [Concomitant]
     Active Substance: POLYETHYLENE GLYCOL 3350
  15. VIREAD [Suspect]
     Active Substance: TENOFOVIR DISOPROXIL FUMARATE
     Indication: HIV INFECTION
     Dosage: UNK
     Route: 048
     Dates: start: 2001
  16. TRUVADA [Suspect]
     Active Substance: EMTRICITABINE\TENOFOVIR DISOPROXIL FUMARATE
     Dosage: UNK
     Route: 048
     Dates: start: 2001
  17. TRUVADA [Suspect]
     Active Substance: EMTRICITABINE\TENOFOVIR DISOPROXIL FUMARATE
     Dosage: UNK
     Route: 048
     Dates: start: 20130918
  18. ALBUTEROL HFA [Concomitant]
     Active Substance: ALBUTEROL SULFATE
  19. SALSALATE. [Concomitant]
     Active Substance: SALSALATE
  20. SILDENAFIL. [Concomitant]
     Active Substance: SILDENAFIL
  21. CALCIUM [Concomitant]
     Active Substance: CALCIUM
  22. CLOPIDOGREL [Concomitant]
     Active Substance: CLOPIDOGREL BISULFATE
  23. DICLOFENAC [Concomitant]
     Active Substance: DICLOFENAC
  24. LISINOPRIL. [Concomitant]
     Active Substance: LISINOPRIL

REACTIONS (14)
  - Tooth loss [Unknown]
  - Pain [Not Recovered/Not Resolved]
  - Back pain [Unknown]
  - Economic problem [Not Recovered/Not Resolved]
  - Anxiety [Not Recovered/Not Resolved]
  - Arthralgia [Unknown]
  - Lower limb fracture [Unknown]
  - Anhedonia [Not Recovered/Not Resolved]
  - Rib fracture [Not Recovered/Not Resolved]
  - Pain in extremity [Unknown]
  - Osteoporosis [Not Recovered/Not Resolved]
  - Emotional distress [Not Recovered/Not Resolved]
  - Chronic kidney disease [Not Recovered/Not Resolved]
  - Bone density decreased [Unknown]

NARRATIVE: CASE EVENT DATE: 20141212
